FAERS Safety Report 9636775 (Version 1)
Quarter: 2013Q4

REPORT INFORMATION
  Report Type: Spontaneous
  Country: AU (occurrence: AU)
  Receive Date: 20131022
  Receipt Date: 20131022
  Transmission Date: 20140711
  Serious: Yes (Death)
  Sender: FDA-Public Use
  Company Number: AU-AMGEN-AUSSP2013073372

PATIENT
  Age: 63 Year
  Sex: Male
  Weight: 83 kg

DRUGS (6)
  1. FILGRASTIM [Suspect]
     Indication: PRODUCT USED FOR UNKNOWN INDICATION
     Dosage: 480 MUG, QD
     Route: 058
     Dates: start: 20130923, end: 20130926
  2. ANIDULAFUNGIN [Suspect]
     Indication: PRODUCT USED FOR UNKNOWN INDICATION
     Dosage: 200 MG, ONE TIME DOSE
     Route: 042
     Dates: start: 20130925
  3. GANCICLOVIR [Suspect]
     Indication: PRODUCT USED FOR UNKNOWN INDICATION
     Dosage: 205 MG, QD
     Route: 042
     Dates: start: 20130925
  4. NORADRENALINE /00127501/ [Suspect]
     Indication: PRODUCT USED FOR UNKNOWN INDICATION
     Dosage: 15 MUG, QH
     Route: 042
     Dates: start: 20130923
  5. PIPERACILIN/TAZOBACTAM [Suspect]
     Indication: PRODUCT USED FOR UNKNOWN INDICATION
     Dosage: 4.5 G, 3 TIMES
     Route: 042
     Dates: start: 20130914
  6. TEICOPLANIN [Suspect]
     Indication: PRODUCT USED FOR UNKNOWN INDICATION
     Dosage: 800 MG, 2 TIMES
     Route: 042
     Dates: start: 20130925

REACTIONS (1)
  - Renal failure acute [Fatal]
